FAERS Safety Report 4363445-4 (Version None)
Quarter: 2004Q2

REPORT INFORMATION
  Report Type: 
  Country: None (occurrence: None)
  Receive Date: 20040524
  Receipt Date: 20040518
  Transmission Date: 20050107
  Serious: Yes (Other)
  Sender: FDA-Public Use
  Company Number: GB-GLAXOSMITHKLINE-B0333230A

PATIENT
  Age: 47 Year
  Sex: Female
  Weight: 64 kg

DRUGS (2)
  1. NARAMIG [Suspect]
     Indication: MIGRAINE
     Dosage: 2.5MG SINGLE DOSE
     Route: 048
     Dates: start: 20040316, end: 20040316
  2. IBUPROFEN [Concomitant]
     Indication: HEADACHE
     Dosage: 400MG AS REQUIRED
     Route: 048

REACTIONS (2)
  - PARAESTHESIA [None]
  - PERIORBITAL OEDEMA [None]
